FAERS Safety Report 4749958-1 (Version None)
Quarter: 2005Q3

REPORT INFORMATION
  Report Type: 
  Country: None (occurrence: None)
  Receive Date: 20050822
  Receipt Date: 20050303
  Transmission Date: 20060218
  Serious: Yes (Hospitalization, Other)
  Sender: FDA-Public Use
  Company Number: US-MERCK-0503USA00803

PATIENT
  Age: 85 Year
  Sex: Male
  Weight: 86 kg

DRUGS (12)
  1. VIOXX [Suspect]
     Indication: ARTHRITIS
     Route: 048
     Dates: start: 19990902, end: 20010122
  2. VIOXX [Suspect]
     Route: 048
     Dates: start: 20020622, end: 20021015
  3. VIOXX [Suspect]
     Route: 048
     Dates: start: 20030527, end: 20030902
  4. VIOXX [Suspect]
     Route: 048
     Dates: start: 20040212, end: 20040309
  5. RISPERDAL [Concomitant]
     Indication: AFFECTIVE DISORDER
     Route: 065
  6. XALATAN [Concomitant]
     Indication: GLAUCOMA
     Route: 065
  7. VITAMIN E [Concomitant]
     Route: 065
  8. ZOLOFT [Concomitant]
     Indication: DEPRESSION
     Route: 065
  9. TRIMOX [Concomitant]
     Route: 065
  10. BIAXIN [Concomitant]
     Route: 065
  11. [THERAPY UNSPECIFIED] [Concomitant]
     Route: 065
  12. MINOCYCLINE [Concomitant]
     Route: 065

REACTIONS (3)
  - BLOOD PRESSURE INCREASED [None]
  - CARDIAC FAILURE CONGESTIVE [None]
  - CEREBROVASCULAR ACCIDENT [None]
